FAERS Safety Report 6216624-5 (Version None)
Quarter: 2009Q2

REPORT INFORMATION
  Report Type: 
  Country: None (occurrence: None)
  Receive Date: 20090605
  Receipt Date: 20090601
  Transmission Date: 20091009
  Serious: Yes (Death)
  Sender: FDA-Public Use
  Company Number: PHHY2009BR21375

PATIENT
  Sex: Male

DRUGS (4)
  1. EXELON [Suspect]
     Indication: MEMORY IMPAIRMENT
     Dosage: 1 DF, BID
     Route: 048
  2. GALVUS MET COMBIPACK [Suspect]
     Indication: HYPERGLYCAEMIA
     Dosage: 1 DF, BID
     Route: 048
  3. TEGRETOL [Suspect]
     Dosage: 0.5 DF, QD
     Route: 048
  4. GALVUS [Suspect]

REACTIONS (1)
  - CARDIAC DISORDER [None]
